FAERS Safety Report 9405550 (Version 1)
Quarter: 2013Q3

REPORT INFORMATION
  Report Type: Spontaneous
  Country: US (occurrence: US)
  Receive Date: 20130717
  Receipt Date: 20130717
  Transmission Date: 20140515
  Serious: No
  Sender: FDA-Public Use
  Company Number: US-TEVA-416012USA

PATIENT
  Age: 35 Year
  Sex: Female
  Weight: 78.09 kg

DRUGS (2)
  1. PARAGARD 380A [Suspect]
     Indication: CONTRACEPTION
     Route: 015
     Dates: start: 20130321, end: 20130611
  2. PROVERA [Concomitant]
     Indication: MENSTRUAL DISORDER
     Dates: start: 201303

REACTIONS (4)
  - Amenorrhoea [Unknown]
  - Menorrhagia [Recovered/Resolved]
  - Dyspareunia [Recovered/Resolved]
  - Device expulsion [Recovered/Resolved]
